FAERS Safety Report 11451497 (Version 1)
Quarter: 2015Q3

REPORT INFORMATION
  Report Type: Spontaneous
  Country: US (occurrence: None)
  Receive Date: 20150902
  Receipt Date: 20150902
  Transmission Date: 20151125
  Serious: Yes (Other)
  Sender: FDA-Public Use
  Company Number: None

PATIENT
  Age: 43 Year
  Sex: Female
  Weight: 108.41 kg

DRUGS (5)
  1. FLONASE [Concomitant]
     Active Substance: FLUTICASONE PROPIONATE
  2. ALLEGRA [Concomitant]
     Active Substance: FEXOFENADINE HYDROCHLORIDE
  3. REFRESH P.M. [Suspect]
     Active Substance: MINERAL OIL\PETROLATUM
     Indication: DRY EYE
     Dosage: 1/4 INCH      INTO THE EYE
     Dates: start: 20150710, end: 20150831
  4. GENTEAL EYE LUBRICANT DROPS [Concomitant]
  5. IBUPROFEN. [Concomitant]
     Active Substance: IBUPROFEN

REACTIONS (8)
  - Eye irritation [None]
  - Ocular hyperaemia [None]
  - Product quality issue [None]
  - Drug administration error [None]
  - Lacrimation increased [None]
  - Eye swelling [None]
  - Vision blurred [None]
  - Eye pain [None]

NARRATIVE: CASE EVENT DATE: 20150831
